FAERS Safety Report 6919958-1 (Version None)
Quarter: 2010Q3

REPORT INFORMATION
  Report Type: 
  Country: None (occurrence: None)
  Receive Date: 20100811
  Receipt Date: 20100802
  Transmission Date: 20110219
  Serious: Yes (Other)
  Sender: FDA-Public Use
  Company Number: PHHY2010JP51270

PATIENT
  Age: 68 Year
  Sex: Male

DRUGS (2)
  1. NEORAL [Suspect]
     Dosage: 100 MG DAILY
     Route: 048
  2. STEROIDS NOS [Concomitant]

REACTIONS (3)
  - BLOOD GLUCOSE INCREASED [None]
  - VIITH NERVE PARALYSIS [None]
  - VISION BLURRED [None]
